FAERS Safety Report 7588013-2 (Version None)
Quarter: 2011Q3

REPORT INFORMATION
  Report Type: 
  Country: None (occurrence: None)
  Receive Date: 20110705
  Receipt Date: 20110629
  Transmission Date: 20111222
  Serious: No
  Sender: FDA-Public Use
  Company Number: US-PFIZER INC-2011146333

PATIENT
  Sex: Male
  Weight: 78.005 kg

DRUGS (2)
  1. ALCOHOL [Suspect]
  2. ADVIL LIQUI-GELS [Suspect]
     Indication: HEADACHE
     Dosage: 200 MG, 1X/DAY
     Route: 048
     Dates: start: 20110629

REACTIONS (3)
  - MALAISE [None]
  - HEADACHE [None]
  - NAUSEA [None]
